FAERS Safety Report 11275485 (Version 1)
Quarter: 2015Q3

REPORT INFORMATION
  Report Type: Spontaneous
  Country: US (occurrence: None)
  Receive Date: 20150715
  Receipt Date: 20150715
  Transmission Date: 20151125
  Serious: No
  Sender: FDA-Public Use
  Company Number: None

PATIENT
  Age: 50 Year
  Sex: Female

DRUGS (1)
  1. PLEGRIDY [Suspect]
     Active Substance: PEGINTERFERON BETA-1A
     Indication: MULTIPLE SCLEROSIS
     Dosage: 125 MCG Q2 WEEKS
     Route: 058
     Dates: start: 20150310

REACTIONS (2)
  - Pruritus generalised [None]
  - Hyperaesthesia [None]

NARRATIVE: CASE EVENT DATE: 20150703
